FAERS Safety Report 9026363 (Version 2)
Quarter: 2013Q1

REPORT INFORMATION
  Report Type: Spontaneous
  Country: US (occurrence: US)
  Receive Date: 20130123
  Receipt Date: 20130215
  Transmission Date: 20140127
  Serious: Yes (Life-Threatening)
  Sender: FDA-Public Use
  Company Number: US-BRISTOL-MYERS SQUIBB COMPANY-17281668

PATIENT
  Age: 36 Year
  Sex: Female

DRUGS (12)
  1. SUSTIVA [Suspect]
     Indication: HIV INFECTION
     Route: 048
     Dates: start: 20090505, end: 20090516
  2. SINGULAIR [Suspect]
     Indication: IMMUNE RECONSTITUTION INFLAMMATORY SYNDROME
     Route: 048
     Dates: start: 20090511, end: 20090516
  3. TRUVADA [Suspect]
     Indication: HIV INFECTION
     Route: 048
     Dates: start: 20090505, end: 20090516
  4. FUZEON [Suspect]
     Indication: HIV INFECTION
     Route: 058
     Dates: start: 20090505, end: 20090516
  5. RIFADIN [Suspect]
     Indication: DISSEMINATED TUBERCULOSIS
     Route: 048
     Dates: start: 20090503
  6. BACTRIM [Suspect]
     Indication: ANTIFUNGAL PROPHYLAXIS
     Route: 048
     Dates: start: 20090425, end: 20090516
  7. MYAMBUTOL [Suspect]
     Indication: TUBERCULOSIS
     Route: 048
     Dates: start: 20090425
  8. PIRILENE [Suspect]
     Indication: DISSEMINATED TUBERCULOSIS
     Route: 048
     Dates: start: 20090422, end: 20090516
  9. RIMIFON [Suspect]
     Indication: TUBERCULOSIS
     Route: 048
     Dates: start: 20090425, end: 20090516
  10. IMOVANE [Suspect]
     Indication: INSOMNIA
     Route: 048
     Dates: start: 20090427, end: 20090516
  11. ANSATIPINE [Concomitant]
  12. ZECLAR [Concomitant]

REACTIONS (10)
  - Tuberculosis liver [Unknown]
  - Immune reconstitution inflammatory syndrome [Unknown]
  - Lactic acidosis [Unknown]
  - Jaundice [Unknown]
  - Tachypnoea [Unknown]
  - Insomnia [Unknown]
  - Hepatitis fulminant [Recovered/Resolved]
  - Hepatic encephalopathy [Unknown]
  - Cholestasis [Unknown]
  - Granulomatous liver disease [Unknown]
